FAERS Safety Report 5449771-6 (Version None)
Quarter: 2007Q3

REPORT INFORMATION
  Report Type: 
  Country: None (occurrence: None)
  Receive Date: 20070910
  Receipt Date: 20070910
  Transmission Date: 20080115
  Serious: Yes (Other)
  Sender: FDA-Public Use
  Company Number: None

PATIENT
  Sex: Female

DRUGS (1)
  1. COPPERTONE WATERBABIES LOTION SPF 45 (OCTINOXATE/ OXYBENZONE/OCTISALAT [Suspect]
     Indication: PROPHYLAXIS
     Dosage: TOP
     Route: 061

REACTIONS (1)
  - ASTHMA [None]
